FAERS Safety Report 21037225 (Version 1)
Quarter: 2022Q3

REPORT INFORMATION
  Report Type: Spontaneous
  Country: DE (occurrence: DE)
  Receive Date: 20220703
  Receipt Date: 20220703
  Transmission Date: 20221026
  Serious: Yes (Other)
  Sender: FDA-Public Use
  Company Number: DE-002147023-NVSC2022DE147820

PATIENT
  Sex: Female

DRUGS (2)
  1. XOLAIR [Suspect]
     Active Substance: OMALIZUMAB
     Indication: Asthma
     Dosage: 150 MG, EVERY 4 WEEKS
     Route: 065
     Dates: start: 202112
  2. XOLAIR [Suspect]
     Active Substance: OMALIZUMAB
     Indication: Urticaria

REACTIONS (11)
  - Haemorrhage [Unknown]
  - Cardiovascular insufficiency [Unknown]
  - Pustule [Unknown]
  - Blister [Unknown]
  - Feeling hot [Unknown]
  - Peripheral swelling [Unknown]
  - Swelling face [Unknown]
  - Scar [Unknown]
  - Hyperhidrosis [Unknown]
  - Joint swelling [Unknown]
  - Rash [Unknown]
